FAERS Safety Report 9186216 (Version 1)
Quarter: 2013Q1

REPORT INFORMATION
  Report Type: Spontaneous
  Country: CN (occurrence: CN)
  Receive Date: 20130325
  Receipt Date: 20130325
  Transmission Date: 20140127
  Serious: Yes (Hospitalization)
  Sender: FDA-Public Use
  Company Number: CN-ASTRAZENECA-2013SE18191

PATIENT
  Age: 22727 Day
  Sex: Male
  Weight: 71 kg

DRUGS (2)
  1. FELODIPINE [Suspect]
     Indication: HYPERTENSION
     Route: 048
     Dates: start: 20070608, end: 20110221
  2. METOPROLOL SUCCINATE [Suspect]
     Indication: HYPERTENSION
     Route: 048
     Dates: start: 20070608, end: 20110221

REACTIONS (2)
  - Orthostatic hypotension [Recovered/Resolved]
  - Syncope [Recovered/Resolved]
